FAERS Safety Report 4836524-2 (Version None)
Quarter: 2005Q4

REPORT INFORMATION
  Report Type: 
  Country: None (occurrence: None)
  Receive Date: 20051118
  Receipt Date: 20051107
  Transmission Date: 20060501
  Serious: Yes (Death)
  Sender: FDA-Public Use
  Company Number: 2005154664

PATIENT
  Age: 18 Year
  Sex: Male

DRUGS (2)
  1. DOXEPIN (CAPS) (DOXEPIN) [Suspect]
     Indication: DEPRESSION
  2. HEROIN (DIAMORPHINE) [Suspect]
     Indication: ILL-DEFINED DISORDER

REACTIONS (2)
  - DRUG ABUSER [None]
  - FALL [None]
